FAERS Safety Report 23610310 (Version 6)
Quarter: 2025Q1

REPORT INFORMATION
  Report Type: Spontaneous
  Country: US (occurrence: US)
  Receive Date: 20240308
  Receipt Date: 20250204
  Transmission Date: 20250409
  Serious: Yes (Hospitalization, Other)
  Sender: SANOFI AVENTIS
  Company Number: US-SA-SAC20240307000419

PATIENT
  Age: 36 Year
  Sex: Male

DRUGS (3)
  1. DUPIXENT [Suspect]
     Active Substance: DUPILUMAB
     Indication: Eosinophilic oesophagitis
     Dosage: 300 MG, QW
     Route: 058
     Dates: start: 20240207, end: 202410
  2. DUPIXENT [Suspect]
     Active Substance: DUPILUMAB
     Dosage: 300 MG, QW
     Route: 058
     Dates: start: 202411, end: 202411
  3. DUPIXENT [Suspect]
     Active Substance: DUPILUMAB
     Dosage: 300 MG, QW
     Route: 058
     Dates: start: 202412

REACTIONS (17)
  - Enteritis infectious [Recovered/Resolved]
  - Gastrointestinal haemorrhage [Unknown]
  - Eosinophilic oesophagitis [Unknown]
  - Dysphagia [Unknown]
  - Muscle spasms [Unknown]
  - Hypertension [Unknown]
  - Pain [Unknown]
  - Gastrostomy tube removal [Unknown]
  - Memory impairment [Unknown]
  - Condition aggravated [Unknown]
  - Cognitive disorder [Unknown]
  - Condition aggravated [Unknown]
  - Suture rupture [Unknown]
  - Neurological symptom [Unknown]
  - Neuralgia [Unknown]
  - Muscle spasms [Unknown]
  - Musculoskeletal stiffness [Unknown]

NARRATIVE: CASE EVENT DATE: 20240101
